FAERS Safety Report 24020017 (Version 1)
Quarter: 2024Q2

REPORT INFORMATION
  Report Type: Spontaneous
  Country: CN (occurrence: CN)
  Receive Date: 20240627
  Receipt Date: 20240627
  Transmission Date: 20240716
  Serious: Yes (Hospitalization, Other)
  Sender: FDA-Public Use
  Company Number: CN-ORGANON-O2406CHN002402

PATIENT
  Age: 67 Year
  Sex: Female
  Weight: 48 kg

DRUGS (2)
  1. REMERON [Suspect]
     Active Substance: MIRTAZAPINE
     Indication: Initial insomnia
     Dosage: 15 MG, QD, PO||
     Route: 048
     Dates: start: 20240614, end: 20240614
  2. ESZOPICLONE [Concomitant]
     Active Substance: ESZOPICLONE
     Indication: Initial insomnia
     Dosage: 3 MG, QD, PO
     Route: 048
     Dates: start: 20240614, end: 20240614

REACTIONS (5)
  - Palpitations [Recovered/Resolved]
  - Seizure [Recovered/Resolved]
  - Somnolence [Recovered/Resolved]
  - Dizziness [Recovered/Resolved]
  - Head discomfort [Recovered/Resolved]

NARRATIVE: CASE EVENT DATE: 20240614
